FAERS Safety Report 22260308 (Version 1)
Quarter: 2023Q2

REPORT INFORMATION
  Report Type: Spontaneous
  Country: US (occurrence: None)
  Receive Date: 20230425
  Receipt Date: 20230425
  Transmission Date: 20230722
  Serious: No
  Sender: FDA-Public Use
  Company Number: None

PATIENT
  Age: 70 Year
  Sex: Female
  Weight: 54.43 kg

DRUGS (9)
  1. PIQRAY [Suspect]
     Active Substance: ALPELISIB
     Dosage: 300MG ONCE DAILY ORAL
  2. BENZONATATE [Concomitant]
     Active Substance: BENZONATATE
  3. CARBAMAZEPINE [Concomitant]
     Active Substance: CARBAMAZEPINE
  4. COMPAZINE [Concomitant]
     Active Substance: PROCHLORPERAZINE MALEATE
  5. DULCOLAX NOS [Concomitant]
     Active Substance: BISACODYL OR DOCUSATE SODIUM
  6. ENOXAPARIN [Concomitant]
     Active Substance: ENOXAPARIN
  7. KEPPRA [Concomitant]
     Active Substance: LEVETIRACETAM
  8. LETROZOLE [Concomitant]
     Active Substance: LETROZOLE
  9. MAALOX ANTACID [Concomitant]
     Active Substance: ALUMINUM HYDROXIDE\DIMETHICONE\MAGNESIUM HYDROXIDE

REACTIONS (2)
  - Full blood count decreased [None]
  - Metastases to bone marrow [None]
